FAERS Safety Report 5405747-6 (Version None)
Quarter: 2007Q3

REPORT INFORMATION
  Report Type: 
  Country: None (occurrence: None)
  Receive Date: 20070806
  Receipt Date: 20070723
  Transmission Date: 20080115
  Serious: Yes (Death)
  Sender: FDA-Public Use
  Company Number: GB-JNJFOC-20070800082

PATIENT
  Sex: Female

DRUGS (2)
  1. REMICADE [Suspect]
     Indication: DRUG USE FOR UNKNOWN INDICATION
  2. AZATHIOPRINE [Concomitant]

REACTIONS (2)
  - DEATH [None]
  - LYMPHOMA [None]
